FAERS Safety Report 8508072-X (Version None)
Quarter: 2012Q3

REPORT INFORMATION
  Report Type: 
  Country: None (occurrence: None)
  Receive Date: 20120713
  Receipt Date: 20120711
  Transmission Date: 20120928
  Serious: Yes (Hospitalization)
  Sender: FDA-Public Use
  Company Number: US-AMGEN-USASP2012042919

PATIENT
  Age: 51 Year
  Sex: Female

DRUGS (2)
  1. ENBREL [Suspect]
     Indication: ANKYLOSING SPONDYLITIS
     Dosage: 25 MG, 2 TIMES/WK
     Dates: start: 20020101
  2. COUMADIN [Concomitant]
     Dosage: UNK
     Dates: start: 20111201

REACTIONS (6)
  - PULMONARY THROMBOSIS [None]
  - HAEMOPTYSIS [None]
  - ROAD TRAFFIC ACCIDENT [None]
  - TRAUMATIC LUNG INJURY [None]
  - ANKYLOSING SPONDYLITIS [None]
  - INJECTION SITE HAEMATOMA [None]
